FAERS Safety Report 7553348-6 (Version None)
Quarter: 2011Q2

REPORT INFORMATION
  Report Type: 
  Country: None (occurrence: None)
  Receive Date: 20110617
  Receipt Date: 20110613
  Transmission Date: 20111010
  Serious: Yes (Other)
  Sender: FDA-Public Use
  Company Number: IT-BRISTOL-MYERS SQUIBB COMPANY-15781024

PATIENT
  Age: 39 Year
  Sex: Male

DRUGS (2)
  1. HEPSERA [Concomitant]
     Dosage: FORMULATION:10MG ORAL TABS
     Route: 048
  2. BARACLUDE [Suspect]
     Indication: HEPATITIS B
     Dosage: FORMULATION:BARACLUDE 1MG FILMCOATED ORAL TABS,1DF=1 UNIT
     Route: 048
     Dates: start: 20100303, end: 20100421

REACTIONS (4)
  - GAMMA-GLUTAMYLTRANSFERASE INCREASED [None]
  - HEPATITIS B DNA INCREASED [None]
  - TRANSAMINASES INCREASED [None]
  - ACIDOSIS [None]
